FAERS Safety Report 6147722-2 (Version None)
Quarter: 2009Q2

REPORT INFORMATION
  Report Type: 
  Country: None (occurrence: None)
  Receive Date: 20090402
  Receipt Date: 20080624
  Transmission Date: 20091009
  Serious: Yes (Other)
  Sender: FDA-Public Use
  Company Number: US-WYE-H04732708

PATIENT
  Age: 56 Year
  Sex: Male
  Weight: 83.99 kg

DRUGS (5)
  1. ALAVERT [Suspect]
     Indication: EYE PRURITUS
     Dosage: 1 TABLET DAILY AS NEEDED, ORAL
     Route: 048
     Dates: start: 20070101, end: 20080623
  2. ALAVERT [Suspect]
     Indication: LARYNGITIS
     Dosage: 1 TABLET DAILY AS NEEDED, ORAL
     Route: 048
     Dates: start: 20070101, end: 20080623
  3. ALAVERT [Suspect]
     Indication: OCULAR HYPERAEMIA
     Dosage: 1 TABLET DAILY AS NEEDED, ORAL
     Route: 048
     Dates: start: 20070101, end: 20080623
  4. ALAVERT [Suspect]
     Indication: UPPER RESPIRATORY TRACT CONGESTION
     Dosage: 1 TABLET DAILY AS NEEDED, ORAL
     Route: 048
     Dates: start: 20070101, end: 20080623
  5. EXCEDRIN (ACETYLSALICYLIC ACID/CAFFEINE/PARACETAMOL/SALICYLAMIDE) [Concomitant]

REACTIONS (3)
  - DIZZINESS [None]
  - EUPHORIC MOOD [None]
  - PANIC ATTACK [None]
